FAERS Safety Report 7097035-X (Version None)
Quarter: 2010Q4

REPORT INFORMATION
  Report Type: 
  Country: None (occurrence: None)
  Receive Date: 20101111
  Receipt Date: 20091211
  Transmission Date: 20110411
  Serious: No
  Sender: FDA-Public Use
  Company Number: US-KINGPHARMUSA00001-K200901553

PATIENT
  Sex: Female
  Weight: 114.74 kg

DRUGS (2)
  1. EMBEDA [Suspect]
     Indication: ARTHRALGIA
     Dosage: 30 MG, BID
     Route: 048
     Dates: start: 20091209, end: 20091211
  2. HYDROCODONE [Concomitant]
     Indication: BREAKTHROUGH PAIN
     Dosage: UNK

REACTIONS (7)
  - DRUG INEFFECTIVE [None]
  - DYSARTHRIA [None]
  - EYE SWELLING [None]
  - HEADACHE [None]
  - PAIN [None]
  - PRURITUS [None]
  - SOMNOLENCE [None]
